FAERS Safety Report 13495564 (Version 1)
Quarter: 2017Q2

REPORT INFORMATION
  Report Type: Spontaneous
  Country: US (occurrence: US)
  Receive Date: 20170427
  Receipt Date: 20170427
  Transmission Date: 20170830
  Serious: Yes (Other)
  Sender: FDA-Public Use
  Company Number: None

PATIENT
  Age: 83 Year
  Sex: Female

DRUGS (1)
  1. REPATHA [Suspect]
     Active Substance: EVOLOCUMAB
     Indication: MALAISE
     Route: 058
     Dates: start: 20170224

REACTIONS (2)
  - Oropharyngeal pain [None]
  - Rhinorrhoea [None]

NARRATIVE: CASE EVENT DATE: 20170224
